FAERS Safety Report 24390438 (Version 1)
Quarter: 2024Q4

REPORT INFORMATION
  Report Type: Spontaneous
  Country: ES (occurrence: ES)
  Receive Date: 20241003
  Receipt Date: 20241003
  Transmission Date: 20250115
  Serious: Yes (Life-Threatening, Hospitalization, Other)
  Sender: AUROBINDO
  Company Number: ES-AEMPS-1572873

PATIENT
  Age: 27 Year
  Sex: Male
  Weight: 106.2 kg

DRUGS (2)
  1. ACETAMINOPHEN [Interacting]
     Active Substance: ACETAMINOPHEN
     Indication: Product used for unknown indication
     Dosage: 45 GRAM (45 COMPRIMIDOS)
     Route: 048
     Dates: start: 20240305, end: 20240305
  2. ESCITALOPRAM OXALATE [Interacting]
     Active Substance: ESCITALOPRAM OXALATE
     Indication: Product used for unknown indication
     Dosage: 30 MILLIGRAM (20 COMPRIMIDOS)
     Route: 048
     Dates: start: 20240305, end: 20240305

REACTIONS (2)
  - Hepatocellular injury [Recovered/Resolved]
  - Hypocoagulable state [Recovered/Resolved]

NARRATIVE: CASE EVENT DATE: 20240307
